FAERS Safety Report 15266523 (Version 2)
Quarter: 2018Q4

REPORT INFORMATION
  Report Type: Spontaneous
  Country: MX (occurrence: MX)
  Receive Date: 20180810
  Receipt Date: 20181001
  Transmission Date: 20190204
  Serious: Yes (Death, Hospitalization, Other)
  Sender: FDA-Public Use
  Company Number: PHHY2018MX065491

PATIENT
  Age: 62 Year
  Sex: Male

DRUGS (6)
  1. MYCOPHENOLATE MOFETIL. [Suspect]
     Active Substance: MYCOPHENOLATE MOFETIL
     Indication: RENAL TRANSPLANT
     Route: 065
  2. MYCOPHENOLATE MOFETIL. [Suspect]
     Active Substance: MYCOPHENOLATE MOFETIL
     Indication: IMMUNOSUPPRESSANT DRUG THERAPY
  3. TACROLIMUS. [Suspect]
     Active Substance: TACROLIMUS
     Indication: RENAL TRANSPLANT
     Route: 065
  4. PREDNISONE. [Suspect]
     Active Substance: PREDNISONE
     Indication: RENAL TRANSPLANT
     Dosage: 4 MG/KG, Q12H
     Route: 065
  5. PREDNISONE. [Suspect]
     Active Substance: PREDNISONE
     Indication: IMMUNOSUPPRESSANT DRUG THERAPY
  6. TACROLIMUS. [Suspect]
     Active Substance: TACROLIMUS
     Indication: IMMUNOSUPPRESSANT DRUG THERAPY

REACTIONS (13)
  - Kidney transplant rejection [Unknown]
  - Cytomegalovirus chorioretinitis [Fatal]
  - Dysphagia [Unknown]
  - Cough [Recovered/Resolved]
  - Chest pain [Unknown]
  - Dyspnoea [Recovered/Resolved]
  - Aspergillus infection [Recovered/Resolved]
  - Rhinorrhoea [Recovered/Resolved]
  - Pneumonia influenzal [Unknown]
  - Pyrexia [Unknown]
  - Dysphonia [Recovered/Resolved]
  - Influenza [Unknown]
  - Fungal infection [Recovered/Resolved]
